FAERS Safety Report 19719090 (Version 3)
Quarter: 2021Q4

REPORT INFORMATION
  Report Type: Spontaneous
  Country: US (occurrence: US)
  Receive Date: 20210819
  Receipt Date: 20211005
  Transmission Date: 20220304
  Serious: Yes (Hospitalization)
  Sender: FDA-Public Use
  Company Number: US-ELI_LILLY_AND_COMPANY-US202108008340

PATIENT
  Age: 68 Year
  Sex: Male

DRUGS (2)
  1. CYRAMZA [Suspect]
     Active Substance: RAMUCIRUMAB
     Indication: Non-small cell lung cancer
     Dosage: UNK UNK, OTHER (EVERY 2 WEEKS)
     Route: 042
     Dates: start: 20210113, end: 20210519
  2. AFATINIB [Concomitant]
     Active Substance: AFATINIB
     Indication: Non-small cell lung cancer

REACTIONS (1)
  - Pneumothorax spontaneous [Unknown]

NARRATIVE: CASE EVENT DATE: 20210608
